FAERS Safety Report 11640936 (Version 2)
Quarter: 2015Q4

REPORT INFORMATION
  Report Type: Spontaneous
  Country: PE (occurrence: PE)
  Receive Date: 20151019
  Receipt Date: 20151030
  Transmission Date: 20160304
  Serious: Yes (Death, Other)
  Sender: FDA-Public Use
  Company Number: PE-PFIZER INC-2015347800

PATIENT
  Age: 83 Year
  Sex: Male

DRUGS (1)
  1. NEURONTIN [Suspect]
     Active Substance: GABAPENTIN
     Dosage: UNK

REACTIONS (3)
  - Fall [Unknown]
  - Death [Fatal]
  - Lower limb fracture [Unknown]

NARRATIVE: CASE EVENT DATE: 2014
